FAERS Safety Report 4512334-0 (Version None)
Quarter: 2004Q4

REPORT INFORMATION
  Report Type: 
  Country: None (occurrence: None)
  Receive Date: 20041129
  Receipt Date: 20041117
  Transmission Date: 20050328
  Serious: Yes (Other)
  Sender: FDA-Public Use
  Company Number: JP-GLAXOSMITHKLINE-B0357937A

PATIENT
  Age: 68 Year
  Sex: Male

DRUGS (1)
  1. ZOVIRAX [Suspect]
     Indication: HERPETIC STOMATITIS
     Dosage: 250MG THREE TIMES PER DAY
     Route: 048

REACTIONS (1)
  - GOUT [None]
